FAERS Safety Report 8255065-6 (Version None)
Quarter: 2012Q2

REPORT INFORMATION
  Report Type: 
  Country: None (occurrence: None)
  Receive Date: 20120403
  Receipt Date: 20120326
  Transmission Date: 20120825
  Serious: Yes (Disabling, Other)
  Sender: FDA-Public Use
  Company Number: US-JNJFOC-20080602907

PATIENT
  Sex: Female

DRUGS (6)
  1. LEVAQUIN [Suspect]
     Indication: BACTERIAL INFECTION
     Route: 048
  2. PREDNISONE [Suspect]
     Indication: SINUSITIS
     Route: 065
  3. LEVAQUIN [Suspect]
     Indication: SINUSITIS
     Route: 048
  4. LIPITOR [Concomitant]
  5. LEXAPRO [Concomitant]
  6. CIPROFLOXACIN [Suspect]
     Indication: SINUSITIS
     Route: 065
     Dates: start: 20060101

REACTIONS (4)
  - MENISCUS LESION [None]
  - TENDON INJURY [None]
  - MUSCULAR WEAKNESS [None]
  - TENDONITIS [None]
